FAERS Safety Report 13988864 (Version 1)
Quarter: 2017Q3

REPORT INFORMATION
  Report Type: Spontaneous
  Country: CA (occurrence: CA)
  Receive Date: 20170919
  Receipt Date: 20170919
  Transmission Date: 20171128
  Serious: Yes (Disabling, Other)
  Sender: FDA-Public Use
  Company Number: CA-TEVA-807436ACC

PATIENT
  Age: 10 Year
  Sex: Male
  Weight: 29 kg

DRUGS (7)
  1. PEG-L-ASPARAGINASE [Concomitant]
     Active Substance: PEGASPARGASE
  2. MERCAPTOPURINE. [Concomitant]
     Active Substance: MERCAPTOPURINE
  3. VINCRISTINE SULFATE. [Suspect]
     Active Substance: VINCRISTINE SULFATE
     Indication: ACUTE LYMPHOCYTIC LEUKAEMIA
     Route: 042
  4. ASPARAGINASE (E.COLI) [Concomitant]
     Active Substance: ASPARAGINASE
  5. DOXORUBICIN LIPOSOMAL [Concomitant]
     Active Substance: DOXORUBICIN
  6. METHOTREXATE (MANUFACTURER UNKNOWN) [Concomitant]
     Active Substance: METHOTREXATE
  7. CYTARABINE INJECTION [Concomitant]
     Active Substance: CYTARABINE

REACTIONS (6)
  - Arthralgia [Unknown]
  - Bone pain [Unknown]
  - Neuropathy peripheral [Unknown]
  - Hypoaesthesia [Unknown]
  - Gait disturbance [Unknown]
  - Pain in extremity [Unknown]
